FAERS Safety Report 6395969-2 (Version None)
Quarter: 2009Q4

REPORT INFORMATION
  Report Type: 
  Country: None (occurrence: None)
  Receive Date: 20091009
  Receipt Date: 20091005
  Transmission Date: 20100525
  Serious: Yes (Death, Other)
  Sender: FDA-Public Use
  Company Number: PHHY2009BR42963

PATIENT
  Sex: Male

DRUGS (3)
  1. GLEEVEC [Suspect]
     Indication: GASTROINTESTINAL STROMAL TUMOUR
     Dosage: UNK
  2. GLEEVEC [Suspect]
     Dosage: UNK
     Dates: end: 20090619
  3. SUTENT [Concomitant]

REACTIONS (5)
  - ANAEMIA [None]
  - DEATH [None]
  - DRUG INEFFECTIVE [None]
  - WEIGHT DECREASED [None]
  - WOUND [None]
